FAERS Safety Report 21961292 (Version 3)
Quarter: 2023Q2

REPORT INFORMATION
  Report Type: Report from Study
  Country: US (occurrence: US)
  Receive Date: 20230207
  Receipt Date: 20230526
  Transmission Date: 20230721
  Serious: Yes (Hospitalization)
  Sender: FDA-Public Use
  Company Number: US-TAIHO-2023-000639

PATIENT
  Age: 73 Year
  Sex: Male

DRUGS (8)
  1. LONSURF [Suspect]
     Active Substance: TIPIRACIL HYDROCHLORIDE\TRIFLURIDINE
     Indication: Lung carcinoma cell type unspecified recurrent
     Dosage: CYCLE 1
     Route: 048
     Dates: start: 20230109
  2. LISINOPRIL [Concomitant]
     Active Substance: LISINOPRIL
     Indication: Product used for unknown indication
  3. HERBALS\SENNOSIDES [Concomitant]
     Active Substance: HERBALS\SENNOSIDES
     Indication: Product used for unknown indication
  4. VITAMIN B-COMPLEX [Concomitant]
     Active Substance: DEXPANTHENOL\NIACINAMIDE\PYRIDOXINE HYDROCHLORIDE\RIBOFLAVIN 5^-PHOSPHATE SODIUM\THIAMINE HYDROCHLOR
     Indication: Product used for unknown indication
  5. VITAMIN C [Concomitant]
     Active Substance: ASCORBIC ACID
     Indication: Product used for unknown indication
  6. ACETAMINOPHEN [Concomitant]
     Active Substance: ACETAMINOPHEN
     Indication: Product used for unknown indication
  7. PANTOPRAZOLE [Concomitant]
     Active Substance: PANTOPRAZOLE
     Indication: Product used for unknown indication
  8. PROPRANOLOL [Concomitant]
     Active Substance: PROPRANOLOL HYDROCHLORIDE
     Indication: Product used for unknown indication

REACTIONS (7)
  - Haemorrhage [Recovered/Resolved]
  - Internal haemorrhage [Unknown]
  - Dizziness [Unknown]
  - Off label use [Unknown]
  - Stomatitis [Unknown]
  - Product distribution issue [Unknown]
  - Therapy interrupted [Unknown]
